FAERS Safety Report 5675634-7 (Version None)
Quarter: 2008Q1

REPORT INFORMATION
  Report Type: 
  Country: None (occurrence: None)
  Receive Date: 20080321
  Receipt Date: 20080307
  Transmission Date: 20080703
  Serious: Yes (Hospitalization, Other)
  Sender: FDA-Public Use
  Company Number: US-BAYER-02/04380-USE

PATIENT
  Age: 61 Year
  Sex: Female
  Weight: 68 kg

DRUGS (12)
  1. BETASERON [Suspect]
     Indication: MULTIPLE SCLEROSIS
     Dosage: TOTAL DAILY DOSE: 8 MIU
     Route: 058
     Dates: start: 19990901
  2. ADRIAMYCIN PFS [Suspect]
     Indication: CHEMOTHERAPY
     Dates: start: 20020101, end: 20020101
  3. NADOLOL [Concomitant]
     Indication: MITRAL VALVE PROLAPSE
     Dosage: TOTAL DAILY DOSE: 40 MG
     Dates: start: 19820101, end: 20020517
  4. ESTRADERM [Concomitant]
     Indication: HORMONE REPLACEMENT THERAPY
     Route: 062
     Dates: start: 19870101, end: 20020517
  5. MEDROXYPROGESTERONE [Concomitant]
     Indication: HORMONE REPLACEMENT THERAPY
     Dosage: TOTAL DAILY DOSE: 5 MG
     Dates: start: 19870101, end: 20020522
  6. CENTRUM [Concomitant]
  7. VITAMIN E [Concomitant]
  8. CALCIUM [Concomitant]
  9. VITAMIN B-12 [Concomitant]
  10. COPAXONE [Concomitant]
     Dates: start: 20010101
  11. CARVEDILOL [Concomitant]
     Dosage: TOTAL DAILY DOSE: 12.5 MG
  12. CARVEDILOL [Concomitant]
     Dosage: TOTAL DAILY DOSE: 25 MG

REACTIONS (16)
  - BREAST CANCER [None]
  - CARDIAC FAILURE CONGESTIVE [None]
  - CARDIOMYOPATHY [None]
  - CYSTITIS [None]
  - DYSPNOEA [None]
  - DYSPNOEA PAROXYSMAL NOCTURNAL [None]
  - EJECTION FRACTION DECREASED [None]
  - HEADACHE [None]
  - HYPOAESTHESIA [None]
  - INJECTION SITE BRUISING [None]
  - INJECTION SITE ERYTHEMA [None]
  - MULTIPLE SCLEROSIS [None]
  - MUSCLE SPASMS [None]
  - NECK PAIN [None]
  - ORTHOPNOEA [None]
  - POSTMENOPAUSAL HAEMORRHAGE [None]
